FAERS Safety Report 5550048-9 (Version None)
Quarter: 2007Q4

REPORT INFORMATION
  Report Type: 
  Country: None (occurrence: None)
  Receive Date: 20071128
  Receipt Date: 20070124
  Transmission Date: 20080405
  Serious: Yes (Other)
  Sender: FDA-Public Use
  Company Number: 2007007000

PATIENT
  Age: 71 Year
  Sex: Female
  Weight: 53.5 kg

DRUGS (7)
  1. LIPITOR [Suspect]
     Dosage: 20 MG
     Dates: start: 20060901
  2. CARDIZEM CD [Suspect]
  3. PREVACID [Concomitant]
  4. ANTICOAGULANTS (ANTITHROMBOTIC AGENTS) [Concomitant]
  5. XANAX [Concomitant]
  6. TEMAZEPAM [Concomitant]
  7. CARDIZEM [Concomitant]

REACTIONS (5)
  - CHEST PAIN [None]
  - DIZZINESS [None]
  - DRUG INTERACTION [None]
  - DRY MOUTH [None]
  - HEART RATE IRREGULAR [None]
